FAERS Safety Report 5533382-8 (Version None)
Quarter: 2007Q4

REPORT INFORMATION
  Report Type: 
  Country: None (occurrence: None)
  Receive Date: 20071204
  Receipt Date: 20071126
  Transmission Date: 20080405
  Serious: Yes (Hospitalization, Other)
  Sender: FDA-Public Use
  Company Number: GB-ABBOTT-07P-167-0421464-00

PATIENT
  Sex: Male

DRUGS (8)
  1. KLARICID IV [Suspect]
     Indication: LOWER RESPIRATORY TRACT INFECTION
     Route: 042
     Dates: start: 20071016, end: 20071018
  2. TEMAZEPAM [Concomitant]
     Indication: SEDATIVE THERAPY
     Route: 048
  3. VALSARTAN [Concomitant]
     Indication: BLOOD PRESSURE INCREASED
     Route: 048
     Dates: end: 20071017
  4. FELODIPINE [Concomitant]
     Indication: BLOOD PRESSURE INCREASED
     Route: 048
  5. SIMVASTATIN [Concomitant]
     Indication: BLOOD CHOLESTEROL INCREASED
     Route: 048
     Dates: end: 20071016
  6. CEFUROXIME [Concomitant]
     Indication: INFECTION
     Route: 042
     Dates: start: 20071011, end: 20071018
  7. METROMIDAZOLE [Concomitant]
     Indication: INFECTION
     Route: 042
     Dates: start: 20071011, end: 20071018
  8. AMITRIPTLINE HCL [Concomitant]
     Indication: ANALGESIA
     Route: 048

REACTIONS (2)
  - EXTRAVASATION [None]
  - PAIN [None]
